FAERS Safety Report 9189318 (Version 1)
Quarter: 2013Q1

REPORT INFORMATION
  Report Type: Spontaneous
  Country: US (occurrence: None)
  Receive Date: 20130321
  Receipt Date: 20130321
  Transmission Date: 20140127
  Serious: Yes (Life-Threatening, Hospitalization)
  Sender: FDA-Public Use
  Company Number: None

PATIENT
  Age: 69 Year
  Sex: Male
  Weight: 150.3 kg

DRUGS (1)
  1. PREDNISONE [Suspect]
     Indication: GOUT
     Route: 048
     Dates: start: 20121120, end: 20121123

REACTIONS (7)
  - Nausea [None]
  - Vomiting [None]
  - Gastric haemorrhage [None]
  - Hypotension [None]
  - Gastric ulcer haemorrhage [None]
  - Hyperhidrosis [None]
  - Haemoglobin decreased [None]
